FAERS Safety Report 5863303-X (Version None)
Quarter: 2008Q3

REPORT INFORMATION
  Report Type: 
  Country: None (occurrence: None)
  Receive Date: 20080818
  Receipt Date: 20070509
  Transmission Date: 20090109
  Serious: Yes (Hospitalization)
  Sender: FDA-Public Use
  Company Number: 20073957

PATIENT
  Sex: Female

DRUGS (1)
  1. LIORESAL [Suspect]
     Indication: MUSCLE SPASTICITY
     Dosage: DAILY, INTRATHECAL
     Route: 037

REACTIONS (13)
  - COAGULOPATHY [None]
  - CONVULSION [None]
  - DEPRESSION [None]
  - DYSPHAGIA [None]
  - GAIT DISTURBANCE [None]
  - HEADACHE [None]
  - MENINGITIS [None]
  - NAUSEA [None]
  - NECK PAIN [None]
  - NUCHAL RIGIDITY [None]
  - PYREXIA [None]
  - RASH [None]
  - VOMITING [None]
